FAERS Safety Report 8501393-6 (Version None)
Quarter: 2012Q3

REPORT INFORMATION
  Report Type: 
  Country: None (occurrence: None)
  Receive Date: 20120710
  Receipt Date: 20120629
  Transmission Date: 20120928
  Serious: Yes (Life-Threatening, Hospitalization)
  Sender: FDA-Public Use
  Company Number: DE-JNJFOC-20120704258

PATIENT
  Age: 77 Year
  Sex: Female
  Weight: 80 kg

DRUGS (1)
  1. XARELTO [Suspect]
     Indication: PULMONARY EMBOLISM
     Route: 048
     Dates: start: 20120301

REACTIONS (2)
  - HEMIPARESIS [None]
  - CEREBRAL HAEMORRHAGE [None]
